FAERS Safety Report 11019460 (Version 2)
Quarter: 2015Q2

REPORT INFORMATION
  Report Type: Spontaneous
  Country: US (occurrence: US)
  Receive Date: 20150412
  Receipt Date: 20150525
  Transmission Date: 20150821
  Serious: No
  Sender: FDA-Public Use
  Company Number: US-JNJFOC-20130916847

PATIENT

DRUGS (5)
  1. LEVAQUIN [Suspect]
     Active Substance: LEVOFLOXACIN
     Indication: CUTANEOUS SARCOIDOSIS
     Dosage: ON DAY 1,FOLLOWED BY 500MG/D
     Route: 065
  2. AZITHROMYCIN [Suspect]
     Active Substance: AZITHROMYCIN ANHYDROUS
     Indication: CUTANEOUS SARCOIDOSIS
  3. ETHAMBUTOL [Suspect]
     Active Substance: ETHAMBUTOL HYDROCHLORIDE
     Indication: CUTANEOUS SARCOIDOSIS
     Dosage: 25/MG/KG/D UP TO MAXIMUM DOSAGE OF 1200MG/D
  4. AZITHROMYCIN [Suspect]
     Active Substance: AZITHROMYCIN ANHYDROUS
     Indication: CUTANEOUS SARCOIDOSIS
     Dosage: 500 MG ON DAY 1,FOLLOWED BY 250MG/D
  5. RIFAMPIN. [Suspect]
     Active Substance: RIFAMPIN
     Indication: CUTANEOUS SARCOIDOSIS
     Dosage: 10MG/KG/D UP TO MAXIMUM DOSAGE OF 300MG/D

REACTIONS (1)
  - Insomnia [Unknown]
